FAERS Safety Report 25899157 (Version 1)
Quarter: 2025Q4

REPORT INFORMATION
  Report Type: Spontaneous
  Country: US (occurrence: US)
  Receive Date: 20251009
  Receipt Date: 20251009
  Transmission Date: 20260118
  Serious: No
  Sender: BAUSCH AND LOMB
  Company Number: US-BAUSCHBL-2025BNL029532

PATIENT
  Sex: Female

DRUGS (2)
  1. MIEBO [Suspect]
     Active Substance: PERFLUOROHEXYLOCTANE
     Indication: Dry eye
     Route: 047
  2. XIIDRA [Suspect]
     Active Substance: LIFITEGRAST
     Indication: Dry eye

REACTIONS (2)
  - Lacrimation increased [Not Recovered/Not Resolved]
  - Drug ineffective [Unknown]
